FAERS Safety Report 20709607 (Version 1)
Quarter: 2022Q2

REPORT INFORMATION
  Report Type: Spontaneous
  Country: US (occurrence: None)
  Receive Date: 20220414
  Receipt Date: 20220414
  Transmission Date: 20220721
  Serious: Yes (Hospitalization)
  Sender: FDA-Public Use
  Company Number: None

PATIENT
  Sex: Male
  Weight: 84 kg

DRUGS (1)
  1. TAXOL [Suspect]
     Active Substance: PACLITAXEL
     Indication: Product used for unknown indication
     Dates: end: 20220315

REACTIONS (13)
  - Abdominal pain upper [None]
  - Pleuritic pain [None]
  - Constipation [None]
  - Hypoxia [None]
  - Drug ineffective [None]
  - Abdominal pain [None]
  - Pneumonia aspiration [None]
  - Troponin increased [None]
  - Leukocytosis [None]
  - Anaemia [None]
  - Joint swelling [None]
  - Flatulence [None]
  - Dyspnoea [None]

NARRATIVE: CASE EVENT DATE: 20220403
